FAERS Safety Report 15149805 (Version 1)
Quarter: 2018Q3

REPORT INFORMATION
  Report Type: Spontaneous
  Country: EC (occurrence: EC)
  Receive Date: 20180716
  Receipt Date: 20180716
  Transmission Date: 20181010
  Serious: Yes (Other)
  Sender: FDA-Public Use
  Company Number: EC-PURDUE-GBR-2018-0056731

PATIENT
  Age: 48 Year
  Sex: Male

DRUGS (7)
  1. NORSPAN [Suspect]
     Active Substance: BUPRENORPHINE
     Indication: THORACIC SPINAL STENOSIS
  2. VENLAFAXINA [Concomitant]
     Active Substance: VENLAFAXINE HYDROCHLORIDE
     Dosage: 150 MG, UNK
  3. MELOXICAM. [Concomitant]
     Active Substance: MELOXICAM
     Dosage: 15 MG, UNK
  4. NORSPAN [Suspect]
     Active Substance: BUPRENORPHINE
     Indication: SPINAL OSTEOARTHRITIS
  5. QUETIAPINA [Concomitant]
     Active Substance: QUETIAPINE
     Dosage: 200 MG, UNK
  6. METFORMIN [Concomitant]
     Active Substance: METFORMIN HYDROCHLORIDE
     Dosage: 500 MG, UNK
  7. NORSPAN [Suspect]
     Active Substance: BUPRENORPHINE
     Indication: SCIATICA
     Dosage: 10 MCG, Q1H (STRENGTH 10MG PER WEEK)
     Route: 062

REACTIONS (2)
  - Blister [Recovered/Resolved]
  - Pruritus generalised [Recovered/Resolved]
